FAERS Safety Report 8220196-3 (Version None)
Quarter: 2012Q1

REPORT INFORMATION
  Report Type: 
  Country: None (occurrence: None)
  Receive Date: 20120320
  Receipt Date: 20120309
  Transmission Date: 20120608
  Serious: Yes (Other)
  Sender: FDA-Public Use
  Company Number: US-BAYER-2012-025408

PATIENT
  Age: 19 Year
  Sex: Female

DRUGS (1)
  1. DROSPIRENONE AND ETHINYL ESTRADIOL [Suspect]
     Route: 048

REACTIONS (3)
  - ABDOMINAL ADHESIONS [None]
  - CHOLECYSTECTOMY [None]
  - SCAR [None]
